FAERS Safety Report 4679544-3 (Version None)
Quarter: 2005Q2

REPORT INFORMATION
  Report Type: 
  Country: None (occurrence: None)
  Receive Date: 20050602
  Receipt Date: 20041101
  Transmission Date: 20051028
  Serious: Yes (Hospitalization)
  Sender: FDA-Public Use
  Company Number: 200413398JP

PATIENT
  Age: 49 Year
  Sex: Female
  Weight: 58 kg

DRUGS (11)
  1. ARAVA [Suspect]
     Indication: RHEUMATOID ARTHRITIS
     Route: 048
     Dates: start: 20031113, end: 20040419
  2. VOLTAREN [Concomitant]
     Indication: PAIN
     Route: 048
  3. MUCOSTA [Concomitant]
     Indication: GASTRIC DISORDER
     Route: 048
     Dates: end: 20040211
  4. VOLTAREN SUPPOSITORIEN [Concomitant]
     Indication: PAIN
     Route: 054
  5. PREDNISOLONE [Concomitant]
     Indication: RHEUMATOID ARTHRITIS
     Route: 048
  6. PREDONINE [Concomitant]
     Indication: RHEUMATOID ARTHRITIS
     Route: 048
  7. BREDININ [Concomitant]
     Indication: RHEUMATOID ARTHRITIS
     Route: 048
     Dates: start: 20021219, end: 20031112
  8. AZULFIDINE [Concomitant]
     Indication: RHEUMATOID ARTHRITIS
     Route: 048
     Dates: start: 20030828, end: 20031112
  9. MOVER [Concomitant]
     Indication: RHEUMATOID ARTHRITIS
     Route: 048
     Dates: start: 20030918, end: 20031112
  10. SELTOUCH [Concomitant]
     Indication: PAIN
     Route: 062
  11. METHOTREXATE [Concomitant]
     Dosage: DOSE: 4MG/WEEK
     Route: 048
     Dates: start: 20020711, end: 20021023

REACTIONS (8)
  - ALANINE AMINOTRANSFERASE INCREASED [None]
  - ASPARTATE AMINOTRANSFERASE INCREASED [None]
  - BLOOD ALKALINE PHOSPHATASE INCREASED [None]
  - BLOOD LACTATE DEHYDROGENASE INCREASED [None]
  - DIARRHOEA [None]
  - GAMMA-GLUTAMYLTRANSFERASE INCREASED [None]
  - HEPATIC FUNCTION ABNORMAL [None]
  - PYREXIA [None]
